FAERS Safety Report 5037050-0 (Version None)
Quarter: 2006Q2

REPORT INFORMATION
  Report Type: 
  Country: None (occurrence: None)
  Receive Date: 20060601
  Receipt Date: 20060127
  Transmission Date: 20061013
  Serious: No
  Sender: FDA-Public Use
  Company Number: 2006PV008028

PATIENT
  Sex: Male

DRUGS (1)
  1. BYETTA [Suspect]
     Dosage: SC
     Route: 058
     Dates: start: 20050801

REACTIONS (3)
  - BILIARY COLIC [None]
  - GENERAL SYMPTOM [None]
  - MALAISE [None]
